FAERS Safety Report 20607689 (Version 1)
Quarter: 2022Q1

REPORT INFORMATION
  Report Type: Spontaneous
  Country: US (occurrence: US)
  Receive Date: 20220317
  Receipt Date: 20220317
  Transmission Date: 20220424
  Serious: Yes (Other)
  Sender: FDA-Public Use
  Company Number: US-ORGANON-O2203USA001479

PATIENT
  Age: 31 Year
  Sex: Female

DRUGS (1)
  1. NUVARING [Suspect]
     Active Substance: ETHINYL ESTRADIOL\ETONOGESTREL
     Dosage: ETONOGESTREL / EE VAGINAL RING, 0.12MG/0.015MG, 1 (3 RINGS)
     Route: 067
     Dates: start: 20220302, end: 202203

REACTIONS (3)
  - Device expulsion [Unknown]
  - Accidental underdose [Unknown]
  - Product packaging quantity issue [Unknown]

NARRATIVE: CASE EVENT DATE: 20220301
